FAERS Safety Report 8179888-7 (Version None)
Quarter: 2012Q1

REPORT INFORMATION
  Report Type: 
  Country: None (occurrence: None)
  Receive Date: 20120302
  Receipt Date: 20111222
  Transmission Date: 20120608
  Serious: Yes (Death, Other)
  Sender: FDA-Public Use
  Company Number: IT-CELGENEUS-083-C5013-11061800

PATIENT
  Sex: Male
  Weight: 75 kg

DRUGS (6)
  1. PREDNISONE TAB [Suspect]
     Dosage: 160 MILLIGRAM
     Route: 065
     Dates: end: 20081220
  2. LENALIDOMIDE [Suspect]
     Dosage: 10 MILLIGRAM
     Route: 048
     Dates: end: 20090106
  3. PREDNISONE TAB [Suspect]
     Indication: MULTIPLE MYELOMA
     Dosage: 160 MILLIGRAM
     Route: 065
     Dates: start: 20080320
  4. MELPHALAN HYDROCHLORIDE [Suspect]
     Dosage: 0.18 MG/KG
     Route: 065
     Dates: end: 20081220
  5. LENALIDOMIDE [Suspect]
     Indication: MULTIPLE MYELOMA
     Dosage: 10 MILLIGRAM
     Route: 048
     Dates: start: 20080320
  6. MELPHALAN HYDROCHLORIDE [Suspect]
     Indication: MULTIPLE MYELOMA
     Dosage: 0.18 MG/KG
     Route: 065
     Dates: start: 20080320

REACTIONS (1)
  - ACUTE MYELOID LEUKAEMIA [None]
